FAERS Safety Report 25554641 (Version 1)
Quarter: 2025Q3

REPORT INFORMATION
  Report Type: Spontaneous
  Country: US (occurrence: US)
  Receive Date: 20250715
  Receipt Date: 20250715
  Transmission Date: 20251021
  Serious: No
  Sender: PADAGIS
  Company Number: US-PADAGIS-2025PAD00844

PATIENT

DRUGS (2)
  1. TRETINOIN [Suspect]
     Active Substance: TRETINOIN
     Indication: Acne
     Route: 065
  2. TRETINOIN [Suspect]
     Active Substance: TRETINOIN
     Route: 065
     Dates: start: 202501, end: 202507

REACTIONS (3)
  - Application site erosion [Unknown]
  - Skin exfoliation [Unknown]
  - Drug ineffective [Unknown]

NARRATIVE: CASE EVENT DATE: 20250101
